FAERS Safety Report 7257258-3 (Version None)
Quarter: 2011Q1

REPORT INFORMATION
  Report Type: 
  Country: None (occurrence: None)
  Receive Date: 20110129
  Receipt Date: 20100720
  Transmission Date: 20110831
  Serious: No
  Sender: FDA-Public Use
  Company Number: US-ABBOTT-10P-163-0658687-00

PATIENT
  Age: 54 Year
  Sex: Male

DRUGS (6)
  1. METOPROLOL [Concomitant]
     Indication: BLOOD PRESSURE
     Route: 048
  2. METFORMIN HCL [Concomitant]
     Indication: GLUCOSE TOLERANCE IMPAIRED
     Route: 048
  3. COLCHICINE [Concomitant]
     Indication: GOUT
     Route: 048
  4. LISINOPRIL AND HYDROCHLOROTHIAZIDE [Concomitant]
     Indication: BLOOD PRESSURE
     Route: 048
  5. HUMIRA [Suspect]
     Indication: PSORIATIC ARTHROPATHY
     Route: 058
     Dates: start: 20100615
  6. ULERIC [Concomitant]
     Indication: GOUT
     Route: 048

REACTIONS (8)
  - HEADACHE [None]
  - HYPERAESTHESIA [None]
  - HOT FLUSH [None]
  - DIARRHOEA [None]
  - LIVER FUNCTION TEST ABNORMAL [None]
  - NIGHT SWEATS [None]
  - CHILLS [None]
  - FEELING ABNORMAL [None]
